FAERS Safety Report 17994261 (Version 4)
Quarter: 2020Q3

REPORT INFORMATION
  Report Type: Spontaneous
  Country: US (occurrence: US)
  Receive Date: 20200708
  Receipt Date: 20200803
  Transmission Date: 20201103
  Serious: Yes (Other)
  Sender: FDA-Public Use
  Company Number: US-PFIZER INC-2020261121

PATIENT
  Age: 54 Year
  Sex: Male
  Weight: 104.33 kg

DRUGS (1)
  1. CHANTIX [Suspect]
     Active Substance: VARENICLINE TARTRATE
     Indication: SMOKING CESSATION THERAPY
     Dosage: 1 MG, 2X/DAY (1MG IN THE MORNING AND 1 MG AT NIGHT)

REACTIONS (3)
  - Diabetes mellitus [Not Recovered/Not Resolved]
  - Body height decreased [Unknown]
  - Weight increased [Unknown]

NARRATIVE: CASE EVENT DATE: 2014
